FAERS Safety Report 6003148-3 (Version None)
Quarter: 2008Q4

REPORT INFORMATION
  Report Type: 
  Country: None (occurrence: None)
  Receive Date: 20081216
  Receipt Date: 20081211
  Transmission Date: 20090506
  Serious: Yes (Hospitalization)
  Sender: FDA-Public Use
  Company Number: IT-JNJFOC-20081202697

PATIENT
  Sex: Male

DRUGS (7)
  1. LEVAQUIN [Suspect]
     Indication: BRONCHOPNEUMOPATHY
     Route: 048
  2. TIOTROPIUM [Concomitant]
     Route: 065
  3. FORMOTEROL FUMARATE [Concomitant]
     Route: 065
  4. LACTULOSE [Concomitant]
     Route: 065
  5. ENOXAPARIN SODIUM [Concomitant]
     Route: 065
  6. FRUSEMIDE [Concomitant]
     Route: 065
  7. LANSOPRAZOLE [Concomitant]
     Route: 065

REACTIONS (5)
  - HAEMATOMA [None]
  - MOVEMENT DISORDER [None]
  - OEDEMA [None]
  - PAIN IN EXTREMITY [None]
  - TENDONITIS [None]
